FAERS Safety Report 23891882 (Version 3)
Quarter: 2024Q4

REPORT INFORMATION
  Report Type: Report from Study
  Country: US (occurrence: US)
  Receive Date: 20240524
  Receipt Date: 20241223
  Transmission Date: 20250114
  Serious: Yes (Hospitalization, Other)
  Sender: SANOFI AVENTIS
  Company Number: US-SA-SAC20230201000720

PATIENT
  Age: 74 Year
  Sex: Female

DRUGS (3)
  1. AGALSIDASE BETA [Suspect]
     Active Substance: AGALSIDASE BETA
     Indication: Fabry^s disease
     Dosage: 90 (UNITS UNSPECIFIED), QOW
     Route: 042
     Dates: start: 20070531
  2. AGALSIDASE BETA [Suspect]
     Active Substance: AGALSIDASE BETA
     Dosage: 90 (UNITS UNSPECIFIED), QOW
     Route: 042
     Dates: end: 2024
  3. AGALSIDASE BETA [Suspect]
     Active Substance: AGALSIDASE BETA
     Dosage: 90 (UNITS UNSPECIFIED), QOW
     Route: 042
     Dates: start: 2024

REACTIONS (8)
  - Breast cancer female [Not Recovered/Not Resolved]
  - Renal failure [Not Recovered/Not Resolved]
  - End stage renal disease [Not Recovered/Not Resolved]
  - Cardiac disorder [Unknown]
  - Foaming at mouth [Unknown]
  - Vomiting [Unknown]
  - Feeling abnormal [Unknown]
  - Post procedural drainage [Not Recovered/Not Resolved]

NARRATIVE: CASE EVENT DATE: 20220101
